FAERS Safety Report 7626326-6 (Version None)
Quarter: 2011Q3

REPORT INFORMATION
  Report Type: 
  Country: None (occurrence: None)
  Receive Date: 20110721
  Receipt Date: 20110719
  Transmission Date: 20111222
  Serious: Yes (Other)
  Sender: FDA-Public Use
  Company Number: LB-JNJFOC-20110703930

PATIENT
  Age: 38 Year
  Sex: Female

DRUGS (4)
  1. TOPAMAX [Suspect]
     Indication: MIGRAINE PROPHYLAXIS
     Route: 048
  2. TOPAMAX [Suspect]
     Route: 048
  3. TOPAMAX [Suspect]
     Route: 048
  4. TOPAMAX [Suspect]
     Route: 048
     Dates: start: 20110601

REACTIONS (6)
  - SENSATION OF FOREIGN BODY [None]
  - DYSPHAGIA [None]
  - EAR PAIN [None]
  - RASH GENERALISED [None]
  - DERMATITIS BULLOUS [None]
  - HYPOAESTHESIA [None]
